FAERS Safety Report 6260028-6 (Version None)
Quarter: 2009Q3

REPORT INFORMATION
  Report Type: 
  Country: None (occurrence: None)
  Receive Date: 20090708
  Receipt Date: 20090626
  Transmission Date: 20100115
  Serious: Yes (Life-Threatening, Hospitalization, Other)
  Sender: FDA-Public Use
  Company Number: FR-ELI_LILLY_AND_COMPANY-FR200906006191

PATIENT
  Sex: Male

DRUGS (9)
  1. PROZAC [Suspect]
     Indication: DEPRESSION
     Dosage: 20 MG, DAILY (1/D)
     Route: 048
     Dates: start: 20080801
  2. PREVISCAN [Concomitant]
     Dosage: 7.5 MG, DAILY (1/D)
     Route: 048
  3. PLAVIX [Concomitant]
     Indication: ARTERITIS
     Dosage: 75 MG, DAILY (1/D)
     Route: 048
     Dates: start: 20080801, end: 20090319
  4. PLAVIX [Concomitant]
     Dates: start: 20090301
  5. ALDACTONE [Concomitant]
     Dosage: 75 MG, DAILY (1/D)
     Route: 048
  6. ALDACTONE [Concomitant]
     Dosage: 75 MG, DAILY (1/D)
     Dates: start: 20080801
  7. LYRICA [Concomitant]
     Indication: EPILEPSY
     Dosage: 25 MG, DAILY (1/D)
     Route: 048
     Dates: start: 20080801
  8. SKENAN [Concomitant]
     Dosage: 20 MG, DAILY (1/D)
     Route: 048
     Dates: start: 20081001
  9. FORLAX [Concomitant]
     Dosage: 4 G, DAILY (1/D)
     Dates: start: 20080501

REACTIONS (5)
  - CEREBRAL HAEMATOMA [None]
  - COMA [None]
  - EPILEPSY [None]
  - HYPERTENSION [None]
  - VISION BLURRED [None]
